FAERS Safety Report 6417764-8 (Version None)
Quarter: 2009Q4

REPORT INFORMATION
  Report Type: 
  Country: None (occurrence: None)
  Receive Date: 20091027
  Receipt Date: 20091027
  Transmission Date: 20100525
  Serious: Yes (Death)
  Sender: FDA-Public Use
  Company Number: None

PATIENT
  Age: 74 Year
  Sex: Male
  Weight: 99.7913 kg

DRUGS (5)
  1. FOSINOPRIL SODIUM [Suspect]
     Indication: HYPERTENSION
     Dosage: 10MG DAILY PO } 1 YEAR
     Route: 048
  2. ZETIA [Concomitant]
  3. METOPROLOL SUCCINATE [Concomitant]
  4. VIAGRA [Concomitant]
  5. SIMVASTATIN [Concomitant]

REACTIONS (2)
  - CARDIAC ARREST [None]
  - SWOLLEN TONGUE [None]
